FAERS Safety Report 6425963-4 (Version None)
Quarter: 2009Q4

REPORT INFORMATION
  Report Type: 
  Country: None (occurrence: None)
  Receive Date: 20091103
  Receipt Date: 20091103
  Transmission Date: 20100525
  Serious: No
  Sender: FDA-Public Use
  Company Number: None

PATIENT
  Age: 42 Year
  Sex: Female

DRUGS (2)
  1. VARENICLINE [Suspect]
     Indication: BIPOLAR I DISORDER
     Dosage: 1 MG EVERY DAY PO
     Route: 048
     Dates: start: 20080930, end: 20081028
  2. TOPIRAMATE [Suspect]
     Indication: BIPOLAR I DISORDER
     Dosage: 200 MG BID PO
     Route: 048
     Dates: start: 20081010

REACTIONS (3)
  - AGGRESSION [None]
  - AGITATION [None]
  - ANXIETY [None]
